FAERS Safety Report 12700054 (Version 1)
Quarter: 2016Q3

REPORT INFORMATION
  Report Type: Spontaneous
  Country: US (occurrence: US)
  Receive Date: 20160830
  Receipt Date: 20160830
  Transmission Date: 20161109
  Serious: Yes (Other)
  Sender: FDA-Public Use
  Company Number: US-BAYER-2016-165021

PATIENT
  Age: 54 Year
  Sex: Female

DRUGS (1)
  1. MIRENA [Suspect]
     Active Substance: LEVONORGESTREL
     Indication: HYPERPLASIA
     Dosage: 20 MCG/24HR, CONT
     Route: 015
     Dates: start: 201501

REACTIONS (5)
  - Anxiety [None]
  - Product use issue [None]
  - Genital haemorrhage [None]
  - Therapeutic response unexpected [None]
  - Drug ineffective for unapproved indication [None]

NARRATIVE: CASE EVENT DATE: 2016
